FAERS Safety Report 19370042 (Version 2)
Quarter: 2021Q3

REPORT INFORMATION
  Report Type: Spontaneous
  Country: US (occurrence: US)
  Receive Date: 20210604
  Receipt Date: 20210706
  Transmission Date: 20211014
  Serious: No
  Sender: FDA-Public Use
  Company Number: US-B.I. PHARMACEUTICALS,INC./RIDGEFIELD-2021-BI-107569

PATIENT
  Age: 43 Year
  Sex: Male

DRUGS (2)
  1. SPIRIVA RESPIMAT [Suspect]
     Active Substance: TIOTROPIUM BROMIDE
     Indication: ASTHMA
     Dosage: 1.25 MCG 2 PUFFS ONCE A DAY
     Dates: start: 2017
  2. ADVAIR HFA [Concomitant]
     Active Substance: FLUTICASONE PROPIONATE\SALMETEROL XINAFOATE
     Indication: ASTHMA
     Dosage: 230/21 TAKE 2 PUFFS TWO TIMES DAILY.

REACTIONS (5)
  - Dizziness [Recovered/Resolved]
  - Respiration abnormal [Recovered/Resolved]
  - Product quality issue [Unknown]
  - Visual impairment [Recovered/Resolved]
  - Syncope [Recovered/Resolved]

NARRATIVE: CASE EVENT DATE: 20210601
